FAERS Safety Report 8078760-0 (Version None)
Quarter: 2012Q1

REPORT INFORMATION
  Report Type: 
  Country: None (occurrence: None)
  Receive Date: 20120127
  Receipt Date: 20110110
  Transmission Date: 20120608
  Serious: No
  Sender: FDA-Public Use
  Company Number: US-ABBOTT-11P-163-0696454-00

PATIENT
  Age: 30 Year
  Sex: Female

DRUGS (3)
  1. TRIVORA-28 [Concomitant]
     Indication: ORAL CONTRACEPTION
  2. TOPAMAX [Concomitant]
     Indication: MIGRAINE
  3. HUMIRA [Suspect]
     Indication: CROHN'S DISEASE
     Dates: start: 20081101

REACTIONS (1)
  - INJECTION SITE PAIN [None]
